FAERS Safety Report 18391737 (Version 2)
Quarter: 2020Q4

REPORT INFORMATION
  Report Type: Report from Study
  Country: US (occurrence: US)
  Receive Date: 20201016
  Receipt Date: 20201026
  Transmission Date: 20210114
  Serious: Yes (Other)
  Sender: FDA-Public Use
  Company Number: US-ROCHE-2694548

PATIENT
  Age: 15 Year
  Sex: Male
  Weight: 47.5 kg

DRUGS (11)
  1. OMALIZUMAB. [Suspect]
     Active Substance: OMALIZUMAB
  2. EPINEPHRINE. [Concomitant]
     Active Substance: EPINEPHRINE
     Indication: COUGH
     Route: 030
  3. DIPHENHYDRAMINE. [Concomitant]
     Active Substance: DIPHENHYDRAMINE
     Indication: NASAL CONGESTION
     Route: 048
  4. METHYLPREDNISOLONE. [Concomitant]
     Active Substance: METHYLPREDNISOLONE
     Route: 042
  5. BLINDED OMALIZUMAB [Suspect]
     Active Substance: OMALIZUMAB
     Indication: FOOD ALLERGY
     Route: 058
  6. DIPHENHYDRAMINE. [Concomitant]
     Active Substance: DIPHENHYDRAMINE
     Indication: PRURITUS
  7. OMALIZUMAB. [Suspect]
     Active Substance: OMALIZUMAB
  8. DULERA [Concomitant]
     Active Substance: FORMOTEROL FUMARATE DIHYDRATE\MOMETASONE FUROATE
     Indication: ASTHMA
     Route: 055
     Dates: start: 20200121
  9. ALBUTEROL. [Concomitant]
     Active Substance: ALBUTEROL
     Dosage: 2 PUFFS
  10. DULERA [Concomitant]
     Active Substance: FORMOTEROL FUMARATE DIHYDRATE\MOMETASONE FUROATE
     Route: 055
     Dates: start: 20200121
  11. PREDNISONE. [Concomitant]
     Active Substance: PREDNISONE
     Route: 048

REACTIONS (1)
  - Anaphylactic reaction [Recovered/Resolved]

NARRATIVE: CASE EVENT DATE: 20200812
